FAERS Safety Report 18264588 (Version 2)
Quarter: 2020Q3

REPORT INFORMATION
  Report Type: Spontaneous
  Country: FR (occurrence: FR)
  Receive Date: 20200914
  Receipt Date: 20200917
  Transmission Date: 20201103
  Serious: Yes (Other)
  Sender: FDA-Public Use
  Company Number: NVSC2020FR248223

PATIENT
  Age: 80 Year
  Sex: Female

DRUGS (5)
  1. PREDNISOLONE. [Suspect]
     Active Substance: PREDNISOLONE
     Indication: SARCOIDOSIS
     Dosage: 10 MG, QD
     Route: 048
     Dates: start: 2000
  2. ACTONEL [Suspect]
     Active Substance: RISEDRONATE SODIUM
     Indication: OSTEOPOROSIS
     Dosage: UNK
     Route: 048
     Dates: start: 2014, end: 2017
  3. ACTONEL [Suspect]
     Active Substance: RISEDRONATE SODIUM
     Indication: MENOPAUSE
  4. PROLIA [Suspect]
     Active Substance: DENOSUMAB
     Indication: OSTEOPOROSIS
     Dosage: 1 DF, Q6M
     Route: 058
     Dates: start: 2017, end: 20200701
  5. PROLIA [Suspect]
     Active Substance: DENOSUMAB
     Indication: MENOPAUSE

REACTIONS (1)
  - Osteonecrosis of jaw [Not Recovered/Not Resolved]

NARRATIVE: CASE EVENT DATE: 20200703
